FAERS Safety Report 24468179 (Version 1)
Quarter: 2024Q4

REPORT INFORMATION
  Report Type: Spontaneous
  Country: PL (occurrence: PL)
  Receive Date: 20241018
  Receipt Date: 20241018
  Transmission Date: 20250114
  Serious: Yes (Other)
  Sender: ABBVIE
  Company Number: PL-ABBVIE-5965597

PATIENT
  Age: 84 Year
  Sex: Male

DRUGS (3)
  1. VENETOCLAX [Suspect]
     Active Substance: VENETOCLAX
     Indication: Acute myeloid leukaemia
     Dosage: NPM1+
     Route: 048
     Dates: start: 20230707
  2. HYDROXYUREA [Concomitant]
     Active Substance: HYDROXYUREA
     Indication: Premedication
     Dates: start: 2023
  3. AZACITIDINE [Concomitant]
     Active Substance: AZACITIDINE
     Indication: Acute myeloid leukaemia
     Dosage: NPM1+
     Dates: start: 20230707

REACTIONS (20)
  - Atrial fibrillation [Unknown]
  - Neutropenia [Unknown]
  - Pathogen resistance [Unknown]
  - Blood albumin decreased [Unknown]
  - Pleural effusion [Unknown]
  - Urinary tract infection [Unknown]
  - Neutrophil count decreased [Recovered/Resolved]
  - Febrile neutropenia [Unknown]
  - Pneumonia [Unknown]
  - Bone marrow failure [Unknown]
  - Thrombocytopenia [Not Recovered/Not Resolved]
  - Neutrophil count decreased [Recovered/Resolved]
  - Pericardial effusion [Unknown]
  - Aspartate aminotransferase increased [Unknown]
  - General physical health deterioration [Unknown]
  - Alanine aminotransferase increased [Unknown]
  - Blood bilirubin increased [Recovered/Resolved]
  - Platelet count decreased [Recovering/Resolving]
  - Pathogen resistance [Recovered/Resolved]
  - Full blood count abnormal [Recovered/Resolved]

NARRATIVE: CASE EVENT DATE: 20230101
